FAERS Safety Report 13166158 (Version 1)
Quarter: 2017Q1

REPORT INFORMATION
  Report Type: Spontaneous
  Country: US (occurrence: US)
  Receive Date: 20170131
  Receipt Date: 20170131
  Transmission Date: 20170428
  Serious: Yes (Other)
  Sender: FDA-Public Use
  Company Number: US-ROCHE-1886247

PATIENT
  Age: 84 Year
  Sex: Female

DRUGS (1)
  1. ESBRIET [Suspect]
     Active Substance: PIRFENIDONE
     Indication: PULMONARY FIBROSIS
     Dosage: 3 PILLS THREE TIMES A DAY ;ONGOING: YES
     Route: 048
     Dates: start: 2016

REACTIONS (7)
  - Nausea [Not Recovered/Not Resolved]
  - Headache [Unknown]
  - Dizziness [Unknown]
  - Pain [Unknown]
  - Asthenia [Not Recovered/Not Resolved]
  - Decreased appetite [Not Recovered/Not Resolved]
  - Vertigo [Not Recovered/Not Resolved]

NARRATIVE: CASE EVENT DATE: 20170122
